FAERS Safety Report 7095564-6 (Version None)
Quarter: 2010Q4

REPORT INFORMATION
  Report Type: 
  Country: None (occurrence: None)
  Receive Date: 20101103
  Receipt Date: 20101025
  Transmission Date: 20110411
  Serious: Yes (Other)
  Sender: FDA-Public Use
  Company Number: 013902

PATIENT
  Age: 56 Year
  Sex: Female

DRUGS (6)
  1. KEPPRA [Suspect]
     Dosage: SEE IMAGE ORAL
     Route: 048
     Dates: start: 20090401
  2. KEPPRA [Suspect]
     Dosage: SEE IMAGE ORAL
     Route: 048
     Dates: start: 20100101
  3. KEPPRA [Suspect]
     Dosage: SEE IMAGE ORAL
     Route: 048
     Dates: start: 20100101
  4. KEPPRA [Suspect]
     Dosage: SEE IMAGE ORAL
     Route: 048
     Dates: start: 20100101
  5. KEPPRA [Suspect]
     Dosage: SEE IMAGE ORAL
     Route: 048
     Dates: start: 20100101
  6. KEPPRA [Suspect]
     Dosage: SEE IMAGE ORAL
     Route: 048
     Dates: start: 20100101

REACTIONS (8)
  - CONVULSION [None]
  - DRUG INEFFECTIVE [None]
  - DYSPHEMIA [None]
  - FAECAL INCONTINENCE [None]
  - FALL [None]
  - INSOMNIA [None]
  - SOMATOFORM DISORDER [None]
  - URINARY INCONTINENCE [None]
